FAERS Safety Report 14910220 (Version 3)
Quarter: 2018Q3

REPORT INFORMATION
  Report Type: Spontaneous
  Country: JP (occurrence: JP)
  Receive Date: 20180517
  Receipt Date: 20180705
  Transmission Date: 20181010
  Serious: Yes (Hospitalization)
  Sender: FDA-Public Use
  Company Number: JP-BAYER-2018-094662

PATIENT
  Age: 55 Year
  Sex: Female
  Weight: 42.4 kg

DRUGS (2)
  1. AVELOX [Suspect]
     Active Substance: MOXIFLOXACIN HYDROCHLORIDE
     Indication: PNEUMONIA
     Dosage: 400 MG, QD
     Route: 048
     Dates: start: 20170517, end: 20170530
  2. ERYTHROCIN [Concomitant]
     Active Substance: ERYTHROMYCIN LACTOBIONATE
     Indication: PSEUDOMONAS INFECTION
     Dosage: 200 MG, TID
     Route: 048
     Dates: start: 20170621, end: 20170820

REACTIONS (4)
  - Bronchopulmonary aspergillosis [Recovering/Resolving]
  - Drug prescribing error [None]
  - Respiratory tract haemorrhage [Recovering/Resolving]
  - Off label use [None]

NARRATIVE: CASE EVENT DATE: 20170517
